FAERS Safety Report 5142479-6 (Version None)
Quarter: 2006Q4

REPORT INFORMATION
  Report Type: 
  Country: None (occurrence: None)
  Receive Date: 20061102
  Receipt Date: 20061024
  Transmission Date: 20070319
  Serious: Yes (Death, Other)
  Sender: FDA-Public Use
  Company Number: JP-ELI_LILLY_AND_COMPANY-JP200610004284

PATIENT
  Age: 82 Year
  Sex: Male

DRUGS (1)
  1. GEMZAR [Suspect]
     Indication: PANCREATIC CARCINOMA
     Dosage: UNK, UNKNOWN
     Route: 042

REACTIONS (2)
  - CEREBRAL HAEMORRHAGE [None]
  - PLATELET COUNT DECREASED [None]
